FAERS Safety Report 23716407 (Version 1)
Quarter: 2024Q2

REPORT INFORMATION
  Report Type: Spontaneous
  Country: US (occurrence: US)
  Receive Date: 20240408
  Receipt Date: 20240408
  Transmission Date: 20240716
  Serious: No
  Sender: FDA-Public Use
  Company Number: US-UCBSA-2023059267

PATIENT
  Age: 31 Year
  Sex: Female

DRUGS (1)
  1. BRIVIACT [Suspect]
     Active Substance: BRIVARACETAM
     Indication: Focal dyscognitive seizures
     Dosage: 100 MILLIGRAM, 2X/DAY (BID)

REACTIONS (3)
  - Insurance issue [Unknown]
  - Product availability issue [Unknown]
  - Inability to afford medication [Unknown]
